FAERS Safety Report 8009352-7 (Version None)
Quarter: 2011Q4

REPORT INFORMATION
  Report Type: 
  Country: None (occurrence: None)
  Receive Date: 20111227
  Receipt Date: 20111216
  Transmission Date: 20120403
  Serious: Yes (Hospitalization, Other)
  Sender: FDA-Public Use
  Company Number: US-ASTRAZENECA-2010SE16905

PATIENT
  Age: 76 Year
  Sex: Female

DRUGS (13)
  1. PROAIR HFA [Concomitant]
  2. RANITIN [Concomitant]
  3. SYMBICORT [Suspect]
     Dosage: 320 MCG, TWO TIMES A DAY
     Route: 055
     Dates: start: 20090401
  4. SYNTHROID [Concomitant]
  5. METOPROLOL SUCCINATE [Concomitant]
     Route: 048
  6. VERAPAMIL [Concomitant]
  7. SINGULAIR [Concomitant]
  8. HYDROCORT [Concomitant]
  9. NASACORT [Concomitant]
  10. PONARIS [Concomitant]
  11. SPIRIVA [Concomitant]
  12. ASTELIN [Concomitant]
  13. FLONASE [Concomitant]

REACTIONS (4)
  - BRONCHOPNEUMONIA [None]
  - SINUS DISORDER [None]
  - EAR DISORDER [None]
  - THROMBOSIS [None]
